FAERS Safety Report 4903612-1 (Version None)
Quarter: 2006Q1

REPORT INFORMATION
  Report Type: 
  Country: None (occurrence: None)
  Receive Date: 20060203
  Receipt Date: 20060125
  Transmission Date: 20060701
  Serious: No
  Sender: FDA-Public Use
  Company Number: 2005BI021537

PATIENT
  Age: 63 Year
  Sex: Female

DRUGS (3)
  1. AVONEX LYOPHILIZED [Suspect]
     Indication: MULTIPLE SCLEROSIS
     Dosage: 30 UG; QW; IM
     Route: 030
     Dates: start: 20030402
  2. AVONEX LIQUID [Suspect]
     Indication: MULTIPLE SCLEROSIS
     Dosage: 30 UG; QW; IM
     Route: 030
  3. VIRUS INFECTION MEDICATION [Concomitant]

REACTIONS (3)
  - DRUG HYPERSENSITIVITY [None]
  - HEART RATE INCREASED [None]
  - VIRAL INFECTION [None]
